FAERS Safety Report 5282402-7 (Version None)
Quarter: 2007Q1

REPORT INFORMATION
  Report Type: 
  Country: None (occurrence: None)
  Receive Date: 20070326
  Receipt Date: 20070308
  Transmission Date: 20070707
  Serious: Yes (Death, Hospitalization, Other)
  Sender: FDA-Public Use
  Company Number: 2006EU002204

PATIENT
  Age: 69 Year
  Sex: Male

DRUGS (10)
  1. TACROLIMUS [Suspect]
     Indication: LIVER TRANSPLANT
     Dosage: 1.5 MG, BID, OAL
     Route: 048
     Dates: start: 20050408
  2. METHYLPREDNISOLONE [Suspect]
     Indication: LIVER TRANSPLANT
     Dosage: 80 MG, UID/QD
     Dates: start: 20050407, end: 20050413
  3. PREDNISONE TAB [Suspect]
     Indication: LIVER TRANSPLANT
     Dosage: 2 MG, UID/QD
     Dates: start: 20050414
  4. ZOVIRAX [Concomitant]
  5. VALACYCLOVIR HCL [Concomitant]
  6. HEPARIN [Concomitant]
  7. FRAXIPARINE (NADROPARIN CALCIUM) [Concomitant]
  8. ASPERGIC (ACETYLSALICYATE LYSINE) [Concomitant]
  9. OMEPRAZOLE [Concomitant]
  10. NEXIUM [Concomitant]

REACTIONS (9)
  - ABDOMINAL PAIN [None]
  - COLONIC POLYP [None]
  - CONSTIPATION [None]
  - DIABETES MELLITUS [None]
  - DIVERTICULUM INTESTINAL [None]
  - HYPERTENSION [None]
  - NASAL SINUS CANCER [None]
  - PROCEDURAL PAIN [None]
  - VOMITING [None]
